FAERS Safety Report 10155750 (Version 1)
Quarter: 2014Q2

REPORT INFORMATION
  Report Type: Spontaneous
  Country: DE (occurrence: DE)
  Receive Date: 20140506
  Receipt Date: 20140506
  Transmission Date: 20141212
  Serious: Yes (Other)
  Sender: FDA-Public Use
  Company Number: DE-TEVA-479044GER

PATIENT
  Age: 71 Year
  Sex: Female

DRUGS (2)
  1. LEVOFLOXACIN ABZ 500 MG FILMTABLETTEN [Suspect]
     Indication: TOOTH DISORDER
     Dosage: 500 MILLIGRAM DAILY;
     Route: 048
     Dates: start: 201301, end: 201301
  2. IBUPROFEN [Concomitant]
     Indication: SPINAL COLUMN INJURY
     Dosage: 1600 MILLIGRAM DAILY;

REACTIONS (10)
  - Suicidal ideation [Not Recovered/Not Resolved]
  - Ocular hypertension [Recovered/Resolved]
  - Pain in extremity [Not Recovered/Not Resolved]
  - Urticaria [Recovered/Resolved]
  - Hearing impaired [Not Recovered/Not Resolved]
  - Pain in extremity [Not Recovered/Not Resolved]
  - Musculoskeletal pain [Not Recovered/Not Resolved]
  - Ligament rupture [Not Recovered/Not Resolved]
  - Tenosynovitis [Not Recovered/Not Resolved]
  - Pain in extremity [None]
